FAERS Safety Report 25866603 (Version 1)
Quarter: 2025Q3

REPORT INFORMATION
  Report Type: Spontaneous
  Country: US (occurrence: US)
  Receive Date: 20250930
  Receipt Date: 20250930
  Transmission Date: 20251020
  Serious: Yes (Hospitalization)
  Sender: TEVA
  Company Number: US-TEVA-VS-3375363

PATIENT
  Age: 36 Year
  Sex: Female

DRUGS (3)
  1. METHYLPREDNISOLONE [Suspect]
     Active Substance: METHYLPREDNISOLONE
     Indication: Myelitis transverse
     Route: 008
  2. METHYLPREDNISOLONE [Suspect]
     Active Substance: METHYLPREDNISOLONE
     Indication: Myelitis transverse
     Route: 042
  3. BUPIVACAINE [Concomitant]
     Active Substance: BUPIVACAINE
     Indication: Cervical radiculopathy
     Route: 008

REACTIONS (8)
  - Quadriplegia [Not Recovered/Not Resolved]
  - Myelitis transverse [Unknown]
  - Spinal stroke [Unknown]
  - Procedural complication [Not Recovered/Not Resolved]
  - Therapy non-responder [Unknown]
  - Urinary retention [Unknown]
  - Deep vein thrombosis [Unknown]
  - Bradycardia [Recovering/Resolving]
